FAERS Safety Report 10302795 (Version 4)
Quarter: 2014Q3

REPORT INFORMATION
  Report Type: Report from Study
  Country: RU (occurrence: RU)
  Receive Date: 20140714
  Receipt Date: 20140829
  Transmission Date: 20150326
  Serious: Yes (Hospitalization)
  Sender: FDA-Public Use
  Company Number: RU-GLAXOSMITHKLINE-B0828270C

PATIENT
  Age: 72 Year
  Sex: Male
  Weight: 86 kg

DRUGS (11)
  1. ATORVASTATIN [Concomitant]
     Active Substance: ATORVASTATIN
     Indication: MYOCARDIAL INFARCTION
     Dosage: 20MG PER DAY
     Route: 048
     Dates: start: 20120828, end: 20140709
  2. CLOPIDOGREL [Concomitant]
     Active Substance: CLOPIDOGREL BISULFATE
     Indication: ANGINA PECTORIS
     Dosage: 75MG PER DAY
     Route: 048
     Dates: start: 20140315
  3. AMIODARONE [Concomitant]
     Active Substance: AMIODARONE
     Indication: ATRIAL FIBRILLATION
     Dosage: 200MG PER DAY
     Route: 048
     Dates: start: 20121002
  4. ACETYLSALICYLIC ACID [Concomitant]
     Active Substance: ASPIRIN
     Indication: MYOCARDIAL ISCHAEMIA
     Dosage: 100MG PER DAY
     Route: 048
     Dates: start: 20090120
  5. NEBIVOLOL [Concomitant]
     Active Substance: NEBIVOLOL
     Indication: MYOCARDIAL ISCHAEMIA
     Dosage: 2.5MG PER DAY
     Route: 048
     Dates: start: 20121002
  6. LOSARTAN [Concomitant]
     Active Substance: LOSARTAN
     Indication: MYOCARDIAL ISCHAEMIA
     Dosage: 100MG PER DAY
     Route: 048
     Dates: start: 20121002
  7. METFORMIN [Concomitant]
     Active Substance: METFORMIN HYDROCHLORIDE
     Indication: DIABETES MELLITUS
     Route: 048
     Dates: start: 20140324
  8. FLUTICASONE FUROATE + VILANTEROL TRIFENATATE [Suspect]
     Active Substance: FLUTICASONE FUROATE\VILANTEROL TRIFENATATE
     Indication: CHRONIC OBSTRUCTIVE PULMONARY DISEASE
     Dates: start: 20120420, end: 20140709
  9. AMLODIPIN [Concomitant]
     Active Substance: AMLODIPINE BESYLATE
     Indication: HYPERTENSION
     Route: 048
     Dates: start: 20130415
  10. ACTRAPID [Concomitant]
     Active Substance: INSULIN HUMAN
     Indication: DIABETES MELLITUS
     Route: 058
     Dates: start: 20140315
  11. FAMOTIDIN [Concomitant]
     Indication: PROPHYLAXIS AGAINST GASTROINTESTINAL ULCER
     Dosage: 40MG PER DAY
     Route: 048
     Dates: start: 20140315

REACTIONS (1)
  - Hepatitis [Recovered/Resolved]

NARRATIVE: CASE EVENT DATE: 20140622
